FAERS Safety Report 4760702-4 (Version None)
Quarter: 2005Q3

REPORT INFORMATION
  Report Type: 
  Country: None (occurrence: None)
  Receive Date: 20050902
  Receipt Date: 20050826
  Transmission Date: 20060218
  Serious: Yes (Other)
  Sender: FDA-Public Use
  Company Number: US-ABBOTT-05P-163-0309543-00

PATIENT
  Sex: Male
  Weight: 109 kg

DRUGS (6)
  1. HUMIRA [Suspect]
     Indication: RHEUMATOID ARTHRITIS
     Route: 058
     Dates: start: 20041001, end: 20050727
  2. ATENOLOL [Suspect]
     Indication: BLOOD PRESSURE INCREASED
     Dates: end: 20050811
  3. ATENOLOL [Suspect]
     Route: 048
     Dates: start: 20050822
  4. IBUPROFEN [Concomitant]
     Indication: RHEUMATOID ARTHRITIS
     Dosage: 3 IN AM/PM
     Route: 048
  5. COUMADIN [Concomitant]
     Indication: PROPHYLAXIS
     Route: 048
     Dates: start: 20050801
  6. SPINAL BLOCK [Concomitant]
     Indication: ANAESTHESIA
     Dosage: SPINAL
     Dates: start: 20050810, end: 20050810

REACTIONS (7)
  - BLOOD PRESSURE DECREASED [None]
  - BLOOD PRESSURE INCREASED [None]
  - COLD SWEAT [None]
  - DIZZINESS [None]
  - FEELING HOT [None]
  - HEART RATE DECREASED [None]
  - NAUSEA [None]
